FAERS Safety Report 22259077 (Version 1)
Quarter: 2023Q2

REPORT INFORMATION
  Report Type: Report from Study
  Country: US (occurrence: US)
  Receive Date: 20230427
  Receipt Date: 20230427
  Transmission Date: 20230722
  Serious: Yes (Hospitalization, Other)
  Sender: FDA-Public Use
  Company Number: US-ABBVIE-4741090

PATIENT
  Age: 25 Year
  Sex: Female

DRUGS (1)
  1. HUMIRA [Suspect]
     Active Substance: ADALIMUMAB
     Indication: Product used for unknown indication
     Dosage: UNKNOWN DEVICE
     Route: 058
     Dates: start: 20210112, end: 20210721

REACTIONS (4)
  - Lupus-like syndrome [Recovered/Resolved]
  - Colitis ulcerative [Recovered/Resolved]
  - Unevaluable event [Unknown]
  - Dyspnoea [Recovered/Resolved]

NARRATIVE: CASE EVENT DATE: 20210127
